FAERS Safety Report 22356079 (Version 1)
Quarter: 2023Q2

REPORT INFORMATION
  Report Type: Spontaneous
  Country: None (occurrence: US)
  Receive Date: 20230523
  Receipt Date: 20230523
  Transmission Date: 20230721
  Serious: No
  Sender: FDA-Public Use
  Company Number: US-Akorn Operating Company, LLC-2141907

PATIENT
  Sex: Female

DRUGS (1)
  1. FENTANYL CITRATE [Suspect]
     Active Substance: FENTANYL CITRATE

REACTIONS (3)
  - Hyperhidrosis [Unknown]
  - Hot flush [Unknown]
  - Erythema [Unknown]
